FAERS Safety Report 5176543-2 (Version None)
Quarter: 2006Q4

REPORT INFORMATION
  Report Type: 
  Country: None (occurrence: None)
  Receive Date: 20061215
  Receipt Date: 20061204
  Transmission Date: 20070319
  Serious: Yes (Other)
  Sender: FDA-Public Use
  Company Number: US-JNJFOC-20061202085

PATIENT
  Sex: Female
  Weight: 19.96 kg

DRUGS (1)
  1. TYLENOL W/ CODEINE [Suspect]
     Indication: ANTIPYRESIS

REACTIONS (1)
  - HALLUCINATION [None]
